FAERS Safety Report 5801553-9 (Version None)
Quarter: 2008Q3

REPORT INFORMATION
  Report Type: 
  Country: None (occurrence: None)
  Receive Date: 20080703
  Receipt Date: 20080703
  Transmission Date: 20090109
  Serious: No
  Sender: FDA-Public Use
  Company Number: None

PATIENT
  Age: 64 Year
  Sex: Male
  Weight: 136.5327 kg

DRUGS (1)
  1. MORPHINE SULFATE [Suspect]
     Dosage: 60MG BID PO
     Route: 048
     Dates: start: 20080528

REACTIONS (5)
  - ASTHENIA [None]
  - MALAISE [None]
  - NAUSEA [None]
  - PHARMACEUTICAL PRODUCT COMPLAINT [None]
  - SOMNOLENCE [None]
